FAERS Safety Report 5481976-0 (Version None)
Quarter: 2007Q4

REPORT INFORMATION
  Report Type: 
  Country: None (occurrence: None)
  Receive Date: 20071005
  Receipt Date: 20070924
  Transmission Date: 20080405
  Serious: Yes (Hospitalization, Other)
  Sender: FDA-Public Use
  Company Number: 2007VX002430

PATIENT
  Sex: Female

DRUGS (1)
  1. LIBRIUM [Suspect]
     Indication: ALCOHOLISM
     Dosage: 75 MG;

REACTIONS (2)
  - LOSS OF CONSCIOUSNESS [None]
  - SOMNOLENCE [None]
